FAERS Safety Report 20443039 (Version 1)
Quarter: 2022Q1

REPORT INFORMATION
  Report Type: Spontaneous
  Country: US (occurrence: None)
  Receive Date: 20220207
  Receipt Date: 20220207
  Transmission Date: 20220423
  Serious: No
  Sender: FDA-Public Use
  Company Number: None

PATIENT
  Age: 68 Year
  Sex: Female
  Weight: 68.95 kg

DRUGS (1)
  1. OTEZLA [Suspect]
     Active Substance: APREMILAST
     Indication: Behcet^s syndrome
     Dosage: FREQUENCY : TWICE A DAY;?
     Route: 048
     Dates: start: 202110

REACTIONS (3)
  - Pneumonia [None]
  - Urinary tract infection [None]
  - Pneumonia [None]
